FAERS Safety Report 10054969 (Version 1)
Quarter: 2014Q2

REPORT INFORMATION
  Report Type: Spontaneous
  Country: JP (occurrence: JP)
  Receive Date: 20140402
  Receipt Date: 20140402
  Transmission Date: 20141212
  Serious: Yes (Other)
  Sender: FDA-Public Use
  Company Number: ALCN2014JP002019

PATIENT
  Sex: Male

DRUGS (2)
  1. FLUORESCITE [Suspect]
     Indication: INTRAOCULAR PRESSURE TEST
     Dosage: 1 DF, UNK
     Route: 042
     Dates: start: 20140324, end: 20140324
  2. BENOXIL [Concomitant]
     Dosage: 1 DF, UNK
     Dates: start: 20140324, end: 20140324

REACTIONS (3)
  - Anaphylactic shock [Recovered/Resolved]
  - Off label use [Recovered/Resolved]
  - Incorrect route of drug administration [Recovered/Resolved]
